FAERS Safety Report 9989989 (Version 1)
Quarter: 2013Q4

REPORT INFORMATION
  Report Type: Spontaneous
  Country: IT (occurrence: None)
  Receive Date: 20131118
  Receipt Date: 20131118
  Transmission Date: 20140711
  Serious: Yes (Hospitalization)
  Sender: FDA-Public Use
  Company Number: IT-ALKEM-000204

PATIENT
  Age: 46 Year
  Sex: Male

DRUGS (3)
  1. MYCOPHENOLATE MOFETIL (MYCOPHENOLATE MOFETIL) [Suspect]
     Indication: RENAL TRANSPLANT
  2. TACROLIMUS (TACROLIMUS) [Suspect]
     Indication: RENAL TRANSPLANT
  3. BASILIXIMAB (BASILIXIMAB) [Concomitant]

REACTIONS (8)
  - Deep vein thrombosis [None]
  - Cytomegalovirus infection [None]
  - Cryoglobulinaemia [None]
  - Renal failure acute [None]
  - Rash [None]
  - Hyperviscosity syndrome [None]
  - Leukopenia [None]
  - Lymphocytosis [None]
